FAERS Safety Report 7294147-2 (Version None)
Quarter: 2011Q1

REPORT INFORMATION
  Report Type: 
  Country: None (occurrence: None)
  Receive Date: 20110215
  Receipt Date: 20110208
  Transmission Date: 20110831
  Serious: Yes (Death)
  Sender: FDA-Public Use
  Company Number: US-CELGENEUS-163-21880-10111831

PATIENT
  Sex: Male
  Weight: 131.21 kg

DRUGS (17)
  1. PLAVIX [Concomitant]
     Indication: CORONARY ARTERY DISEASE
     Route: 065
  2. ASCORBIC ACID [Concomitant]
     Route: 065
  3. ISOSORBIDE MONONITRATE [Concomitant]
     Route: 065
  4. ATENOLOL [Concomitant]
     Route: 065
  5. MIRALAX [Concomitant]
     Route: 065
  6. PRAVASTATIN [Concomitant]
     Route: 065
  7. POTASSIUM [Concomitant]
     Route: 065
  8. LASIX [Concomitant]
     Route: 065
  9. WHOLE BLOOD [Concomitant]
     Route: 051
     Dates: start: 20100101
  10. OXYGEN [Concomitant]
     Route: 065
  11. MULTI-VITAMINS [Concomitant]
     Route: 065
  12. VITAMIN B-12 [Concomitant]
     Route: 065
  13. CITALOPRAM HYDROBROMIDE [Concomitant]
     Route: 065
  14. SUCRALFATE [Concomitant]
     Dosage: 1
     Route: 065
  15. OMEPRAZOLE [Concomitant]
     Route: 065
  16. REVLIMID [Suspect]
     Route: 048
     Dates: start: 20101022
  17. ADVAIR [Concomitant]
     Route: 065

REACTIONS (1)
  - DEATH [None]
